FAERS Safety Report 15281222 (Version 2)
Quarter: 2018Q4

REPORT INFORMATION
  Report Type: Report from Study
  Country: GB (occurrence: GB)
  Receive Date: 20180815
  Receipt Date: 20181105
  Transmission Date: 20190204
  Serious: Yes (Hospitalization, Other)
  Sender: FDA-Public Use
  Company Number: GB-TAKEDA-2018TEU005021

PATIENT
  Age: 68 Year
  Sex: Male
  Weight: 74 kg

DRUGS (9)
  1. MORPHINE [Concomitant]
     Active Substance: MORPHINE
     Indication: PRODUCT USED FOR UNKNOWN INDICATION
     Dosage: UNK
     Route: 065
  2. LEVOTHYROXINE. [Concomitant]
     Active Substance: LEVOTHYROXINE
     Indication: PRODUCT USED FOR UNKNOWN INDICATION
     Dosage: UNK
     Route: 065
  3. RAMIPRIL. [Concomitant]
     Active Substance: RAMIPRIL
     Indication: PRODUCT USED FOR UNKNOWN INDICATION
     Dosage: UNK
     Route: 065
  4. NIVOLUMAB [Suspect]
     Active Substance: NIVOLUMAB
     Indication: ADENOCARCINOMA GASTRIC
     Dosage: UNK UNK, BID
     Dates: start: 20180622, end: 20180814
  5. TAMSULOSIN [Concomitant]
     Active Substance: TAMSULOSIN
     Indication: PRODUCT USED FOR UNKNOWN INDICATION
     Dosage: UNK
     Route: 065
  6. FUROSEMIDE. [Concomitant]
     Active Substance: FUROSEMIDE
     Indication: OEDEMA PERIPHERAL
     Dosage: 40 MG, QD
     Route: 065
  7. LANSOPRAZOLE. [Suspect]
     Active Substance: LANSOPRAZOLE
     Indication: PRODUCT USED FOR UNKNOWN INDICATION
     Dosage: UNK
     Route: 065
  8. COCODAMOL [Concomitant]
     Active Substance: ACETAMINOPHEN\CODEINE PHOSPHATE
     Indication: PRODUCT USED FOR UNKNOWN INDICATION
     Dosage: UNK
     Route: 065
  9. SALBUTAMOL [Concomitant]
     Active Substance: ALBUTEROL
     Indication: PRODUCT USED FOR UNKNOWN INDICATION
     Dosage: UNK
     Route: 065

REACTIONS (7)
  - Anaemia [Unknown]
  - Pain [Recovering/Resolving]
  - Malignant neoplasm progression [Unknown]
  - Dyspnoea [Unknown]
  - Discomfort [Unknown]
  - Fatigue [Recovering/Resolving]
  - Haemoglobin decreased [Unknown]

NARRATIVE: CASE EVENT DATE: 201807
